FAERS Safety Report 10067457 (Version 1)
Quarter: 2014Q2

REPORT INFORMATION
  Report Type: Spontaneous
  Country: None (occurrence: None)
  Receive Date: 20140407
  Receipt Date: 20140407
  Transmission Date: 20141212
  Serious: Yes (Other)
  Sender: FDA-Public Use
  Company Number: 2014P1002771

PATIENT
  Age: 90 Year
  Sex: Female

DRUGS (3)
  1. CIPROFLOXACIN [Suspect]
     Indication: NOSOCOMIAL INFECTION
     Route: 048
     Dates: start: 20110505, end: 20110508
  2. CIPROFLOXACIN [Suspect]
     Indication: NOSOCOMIAL INFECTION
     Dosage: 400MG BID IV.
     Dates: start: 20110509, end: 20110511
  3. CO-AMOXICLAV [Suspect]
     Indication: NOSOCOMIAL INFECTION
     Route: 042
     Dates: start: 20110504, end: 20110504

REACTIONS (2)
  - Gastroenteritis norovirus [None]
  - Clostridium difficile colitis [None]
